FAERS Safety Report 6140155-4 (Version None)
Quarter: 2009Q1

REPORT INFORMATION
  Report Type: 
  Country: None (occurrence: None)
  Receive Date: 20090324
  Receipt Date: 20090316
  Transmission Date: 20090719
  Serious: Yes (Other)
  Sender: FDA-Public Use
  Company Number: 225584

PATIENT
  Sex: Female
  Weight: 81 kg

DRUGS (3)
  1. PACLITAXEL [Suspect]
     Indication: BREAST CANCER
     Dosage: 330 MG, DAILY, INTRAVENOUS
     Route: 042
     Dates: start: 20090206
  2. (SERETIDE) [Concomitant]
  3. VENTOLIN [Concomitant]

REACTIONS (5)
  - BACK PAIN [None]
  - DRUG HYPERSENSITIVITY [None]
  - HOT FLUSH [None]
  - INFUSION RELATED REACTION [None]
  - PAIN IN EXTREMITY [None]
